FAERS Safety Report 7418405-3 (Version None)
Quarter: 2011Q2

REPORT INFORMATION
  Report Type: 
  Country: None (occurrence: None)
  Receive Date: 20110415
  Receipt Date: 20110413
  Transmission Date: 20111010
  Serious: Yes (Other)
  Sender: FDA-Public Use
  Company Number: JP-PFIZER INC-2011036958

PATIENT
  Age: 64 Year
  Sex: Male

DRUGS (3)
  1. METHYCOBAL [Concomitant]
     Indication: NEUROPATHY PERIPHERAL
     Dosage: 500 UG, 3X/DAY
     Route: 048
     Dates: start: 20110201
  2. LYRICA [Suspect]
     Indication: NEUROPATHY PERIPHERAL
     Dosage: 75 MG IN MORNING AND 150 MG IN EVENING
     Route: 048
     Dates: start: 20110201, end: 20110223
  3. RIVOTRIL [Concomitant]
     Indication: HYPERCHOLESTEROLAEMIA
     Dosage: 0.5 MG, 2X/DAY
     Route: 048
     Dates: start: 20110201

REACTIONS (2)
  - VISION BLURRED [None]
  - INTRAOCULAR PRESSURE INCREASED [None]
